FAERS Safety Report 18738415 (Version 3)
Quarter: 2021Q2

REPORT INFORMATION
  Report Type: Spontaneous
  Country: US (occurrence: US)
  Receive Date: 20210114
  Receipt Date: 20210616
  Transmission Date: 20210717
  Serious: Yes (Hospitalization, Other)
  Sender: FDA-Public Use
  Company Number: US-SA-2020SA355481

PATIENT
  Age: 70 Year
  Sex: Male

DRUGS (1)
  1. CAPRELSA [Suspect]
     Active Substance: VANDETANIB
     Indication: THYROID CANCER
     Dosage: 200 MG, QD
     Route: 048
     Dates: start: 20191101

REACTIONS (5)
  - Skin discolouration [Unknown]
  - Malaise [Unknown]
  - Fatigue [Unknown]
  - Pneumonia [Unknown]
  - Ephelides [Unknown]
